FAERS Safety Report 7565191-2 (Version None)
Quarter: 2011Q2

REPORT INFORMATION
  Report Type: 
  Country: None (occurrence: None)
  Receive Date: 20110622
  Receipt Date: 20080626
  Transmission Date: 20111010
  Serious: Yes (Death, Hospitalization)
  Sender: FDA-Public Use
  Company Number: PHHY2008DE37536

PATIENT
  Sex: Male
  Weight: 71 kg

DRUGS (5)
  1. TILIDINE [Concomitant]
  2. ALAPREN [Concomitant]
  3. SANDOSTATIN LAR [Suspect]
     Indication: PANCREATIC NEUROENDOCRINE TUMOUR
     Dosage: 30 MG, UNK
     Route: 030
     Dates: start: 20080401
  4. METOPROLOL TARTRATE [Concomitant]
  5. TORSEMIDE [Concomitant]

REACTIONS (3)
  - ASCITES [None]
  - DEATH [None]
  - DIARRHOEA [None]
